FAERS Safety Report 9114307 (Version 1)
Quarter: 2013Q1

REPORT INFORMATION
  Report Type: Spontaneous
  Country: US (occurrence: US)
  Receive Date: 20130208
  Receipt Date: 20130208
  Transmission Date: 20140127
  Serious: Yes (Other)
  Sender: FDA-Public Use
  Company Number: US-RB-041022-12

PATIENT
  Sex: Male

DRUGS (7)
  1. SUBOXONE FILM [Suspect]
     Dosage: SUBOXONE FILM; 2 FILMS DAILY
     Route: 060
     Dates: start: 201205, end: 201205
  2. SUBOXONE FILM [Suspect]
     Indication: DRUG DEPENDENCE
     Dosage: SUBOXONE FILM; 1 FILM DAILY
     Route: 060
     Dates: start: 201205, end: 201205
  3. SUBOXONE FILM [Suspect]
     Dosage: SUBOXONE FILM; 1/2 FILM DAILY
     Route: 060
     Dates: start: 201205, end: 201207
  4. ATENOLOL [Concomitant]
     Indication: HYPERTENSION
     Dosage: DOSING DETAILS UNKNOWN; QD
     Route: 048
  5. FINASTERIDE [Concomitant]
     Indication: BENIGN PROSTATIC HYPERPLASIA
     Dosage: DOSING DETAILS UNKNOWN; QD
     Route: 048
  6. CARDURA [Concomitant]
     Indication: BENIGN PROSTATIC HYPERPLASIA
     Dosage: DOSING DETAILS UNKNOWN; QD
     Route: 048
  7. MORPHINE [Concomitant]
     Indication: NEUROPATHY PERIPHERAL
     Route: 048
     Dates: start: 201207

REACTIONS (15)
  - Wrong technique in drug usage process [Recovered/Resolved]
  - Underdose [Recovered/Resolved]
  - Faeces discoloured [Recovered/Resolved]
  - Abdominal discomfort [Recovered/Resolved]
  - Nervousness [Recovered/Resolved]
  - Abnormal dreams [Recovered/Resolved]
  - Headache [Recovered/Resolved]
  - Swollen tongue [Recovered/Resolved]
  - Dysgeusia [Recovered/Resolved]
  - Tongue disorder [Recovered/Resolved]
  - Hyperhidrosis [Recovered/Resolved]
  - Nausea [Recovered/Resolved]
  - Palpitations [Recovered/Resolved]
  - Ocular icterus [Recovered/Resolved]
  - Drug withdrawal syndrome [Recovered/Resolved]
